FAERS Safety Report 8984614 (Version 1)
Quarter: 2012Q4

REPORT INFORMATION
  Report Type: 
  Country: US (occurrence: US)
  Receive Date: 20121226
  Receipt Date: 20121226
  Transmission Date: 20130627
  Serious: Yes (Hospitalization, Other)
  Sender: FDA-Public Use
  Company Number: US-JNJFOC-20121206370

PATIENT
  Age: 21 Year
  Sex: Male

DRUGS (6)
  1. RISPERIDONE [Suspect]
     Indication: PSYCHOTIC DISORDER
     Route: 048
  2. RISPERIDONE [Suspect]
     Indication: PSYCHOTIC DISORDER
     Route: 048
  3. RISPERIDONE [Suspect]
     Indication: PSYCHOTIC DISORDER
     Route: 048
  4. RISPERIDONE [Suspect]
     Indication: SCHIZOPHRENIFORM DISORDER
     Route: 048
  5. RISPERIDONE [Suspect]
     Indication: SCHIZOPHRENIFORM DISORDER
     Route: 048
  6. RISPERIDONE [Suspect]
     Indication: SCHIZOPHRENIFORM DISORDER
     Route: 048

REACTIONS (3)
  - Painful erection [Recovered/Resolved]
  - Psychotic disorder [Unknown]
  - Treatment noncompliance [Recovered/Resolved]
